FAERS Safety Report 12919185 (Version 1)
Quarter: 2016Q4

REPORT INFORMATION
  Report Type: Spontaneous
  Country: IN (occurrence: IN)
  Receive Date: 20161108
  Receipt Date: 20161108
  Transmission Date: 20170207
  Serious: Yes (Other)
  Sender: FDA-Public Use
  Company Number: IN-PAR PHARMACEUTICAL COMPANIES-2016SCPR016071

PATIENT

DRUGS (8)
  1. CISPLATIN. [Concomitant]
     Active Substance: CISPLATIN
     Indication: LUNG ADENOCARCINOMA
     Dosage: 125 MG, 1 CYCLE/MONTH, TOTAL 8 CYCLE
     Route: 042
     Dates: start: 201403
  2. ZOLEDRONIC ACID [Suspect]
     Active Substance: ZOLEDRONIC ACID
     Indication: METASTASES TO BONE
     Dosage: 4 MG, MONTHLY
     Route: 042
     Dates: start: 2014, end: 201502
  3. PEMETREXED [Concomitant]
     Active Substance: PEMETREXED
     Indication: METASTASES TO BONE
  4. CISPLATIN. [Concomitant]
     Active Substance: CISPLATIN
     Indication: METASTASES TO BONE
  5. CALCIUM [Concomitant]
     Active Substance: CALCIUM
     Indication: PRODUCT USED FOR UNKNOWN INDICATION
     Dosage: UNK, UNKNOWN
     Route: 065
  6. BLEOMYCIN [Concomitant]
     Active Substance: BLEOMYCIN SULFATE
     Indication: PLEURODESIS
     Dosage: UNK, UNKNOWN
     Route: 065
  7. ZOLEDRONIC ACID [Suspect]
     Active Substance: ZOLEDRONIC ACID
     Indication: LUNG ADENOCARCINOMA
     Dosage: 4 MG, MONTHLY
     Route: 042
     Dates: start: 201403, end: 201409
  8. PEMETREXED [Concomitant]
     Active Substance: PEMETREXED
     Indication: LUNG ADENOCARCINOMA
     Dosage: 850 MG, 1 CYCLE/MONTH, TOTAL 8 CYCLE
     Route: 042
     Dates: start: 201403

REACTIONS (1)
  - Drug-induced liver injury [Recovered/Resolved]

NARRATIVE: CASE EVENT DATE: 201501
